FAERS Safety Report 6127379-7 (Version None)
Quarter: 2009Q1

REPORT INFORMATION
  Report Type: 
  Country: None (occurrence: None)
  Receive Date: 20090323
  Receipt Date: 20090311
  Transmission Date: 20090719
  Serious: Yes (Other)
  Sender: FDA-Public Use
  Company Number: PHEH2009US02570

PATIENT
  Sex: Male
  Weight: 95.238 kg

DRUGS (4)
  1. ZOMETA [Suspect]
     Indication: METASTASES TO BONE
     Dosage: 4 MG, EVERY 4 WEEKS
     Route: 042
     Dates: start: 20070611, end: 20080306
  2. SUTENT [Concomitant]
     Indication: RENAL CANCER
     Dosage: 37.5 MG, QD
     Dates: start: 20070501, end: 20070801
  3. SORAFENIB [Concomitant]
     Indication: RENAL CANCER
     Dosage: 400 MG, BID
     Dates: start: 20070801, end: 20071201
  4. DECADRON [Concomitant]
     Dosage: 4 MG, BID TO QID

REACTIONS (3)
  - BONE DISORDER [None]
  - OSTEONECROSIS [None]
  - TOOTH DISORDER [None]
